FAERS Safety Report 5209224-7 (Version None)
Quarter: 2007Q1

REPORT INFORMATION
  Report Type: 
  Country: None (occurrence: None)
  Receive Date: 20070111
  Receipt Date: 20061222
  Transmission Date: 20070707
  Serious: Yes (Hospitalization, Other)
  Sender: FDA-Public Use
  Company Number: RENA-12084

PATIENT
  Age: 53 Year
  Sex: Male

DRUGS (1)
  1. RENAGEL [Suspect]
     Indication: HYPERPHOSPHATAEMIA
     Dosage: 2 TAB TID PO
     Route: 048
     Dates: start: 20051201

REACTIONS (2)
  - BEZOAR [None]
  - GASTROINTESTINAL MOTILITY DISORDER [None]
